FAERS Safety Report 5031432-9 (Version None)
Quarter: 2006Q2

REPORT INFORMATION
  Report Type: 
  Country: None (occurrence: None)
  Receive Date: 20060616
  Receipt Date: 20060609
  Transmission Date: 20061013
  Serious: Yes (Hospitalization, Other)
  Sender: FDA-Public Use
  Company Number: 226154

PATIENT
  Age: 49 Year
  Weight: 76 kg

DRUGS (3)
  1. RITUXIMAB (RITUXIMAB) CONC FOR SOLUTION FOR INFUSION [Suspect]
     Indication: CHRONIC LYMPHOCYTIC LEUKAEMIA
     Dosage: 950 MG, INTRAVENOUS
     Route: 042
     Dates: start: 20060510, end: 20060510
  2. CYCLOPHOSPHAMIDE [Suspect]
     Indication: CHRONIC LYMPHOCYTIC LEUKAEMIA
     Dosage: 475 MG, INTRAVENOUS
     Route: 042
     Dates: start: 20060510, end: 20060512
  3. FLUDARABINE [Suspect]
     Indication: CHRONIC LYMPHOCYTIC LEUKAEMIA
     Dosage: 47.5 MG, INTRAVENOUS
     Route: 042
     Dates: start: 20060510, end: 20060512

REACTIONS (1)
  - AGRANULOCYTOSIS [None]
